FAERS Safety Report 9165451 (Version 1)
Quarter: 2013Q1

REPORT INFORMATION
  Report Type: Spontaneous
  Country: US (occurrence: US)
  Receive Date: 20130315
  Receipt Date: 20130315
  Transmission Date: 20140127
  Serious: Yes (Death, Hospitalization, Other)
  Sender: FDA-Public Use
  Company Number: US-BAXTER-2013BAX007637

PATIENT
  Age: 46 Year
  Sex: Female

DRUGS (1)
  1. DIANEAL LOW CALCIUM [Suspect]
     Indication: PERITONEAL DIALYSIS
     Route: 033

REACTIONS (6)
  - Death [Fatal]
  - Gastrointestinal necrosis [Unknown]
  - Intestinal perforation [Unknown]
  - Post procedural complication [Unknown]
  - Sepsis [Unknown]
  - Hernia [Unknown]
